FAERS Safety Report 4971582-6 (Version None)
Quarter: 2006Q2

REPORT INFORMATION
  Report Type: 
  Country: None (occurrence: None)
  Receive Date: 20060406
  Receipt Date: 20060317
  Transmission Date: 20061013
  Serious: Yes (Hospitalization)
  Sender: FDA-Public Use
  Company Number: FR200512003893

PATIENT
  Age: 26 Year
  Sex: Female
  Weight: 60 kg

DRUGS (4)
  1. DULOXETINE HYDROCHLORIDE (DULOXETINE HYDROCHLORIDE) CAPSULE [Suspect]
     Indication: MAJOR DEPRESSION
     Dosage: 60 MG, DAILY (1/D), ORAL; SEE IMAGE
     Route: 048
     Dates: start: 20051003, end: 20051018
  2. DULOXETINE HYDROCHLORIDE (DULOXETINE HYDROCHLORIDE) CAPSULE [Suspect]
     Indication: MAJOR DEPRESSION
     Dosage: 60 MG, DAILY (1/D), ORAL; SEE IMAGE
     Route: 048
     Dates: start: 20051019, end: 20051212
  3. DULOXETINE HYDROCHLORIDE (DULOXETINE HYDROCHLORIDE) CAPSULE [Suspect]
     Indication: MAJOR DEPRESSION
     Dosage: 60 MG, DAILY (1/D), ORAL; SEE IMAGE
     Route: 048
     Dates: start: 20051213, end: 20051220
  4. DIANE (CYPROTERONE ACETATE, ETHINYLESTRADIOL) [Concomitant]

REACTIONS (7)
  - ABORTION INDUCED [None]
  - CONDITION AGGRAVATED [None]
  - DRUG EXPOSURE DURING PREGNANCY [None]
  - DRUG INEFFECTIVE [None]
  - MAJOR DEPRESSION [None]
  - TREATMENT NONCOMPLIANCE [None]
  - UNINTENDED PREGNANCY [None]
